FAERS Safety Report 9673199 (Version 1)
Quarter: 2013Q4

REPORT INFORMATION
  Report Type: Spontaneous
  Country: US (occurrence: US)
  Receive Date: 20131106
  Receipt Date: 20131106
  Transmission Date: 20140711
  Serious: Yes (Other)
  Sender: FDA-Public Use
  Company Number: US-AMGEN-USASP2013072642

PATIENT
  Age: 43 Year
  Sex: Female

DRUGS (4)
  1. ENBREL [Suspect]
     Indication: PSORIASIS
     Dosage: UNK
     Route: 065
  2. TRIAMCINOLONE [Concomitant]
     Indication: PSORIASIS
     Dosage: UNK
     Route: 061
  3. ISONIAZID [Concomitant]
     Indication: LATENT TUBERCULOSIS
     Dosage: UNK
  4. PYRIDOXINE [Concomitant]
     Indication: LATENT TUBERCULOSIS
     Dosage: UNK

REACTIONS (9)
  - Mycobacterial infection [Unknown]
  - Skin plaque [Unknown]
  - Pain in extremity [Unknown]
  - Ulcer [Unknown]
  - Excessive granulation tissue [Unknown]
  - Acanthosis [Unknown]
  - Skin fibrosis [Unknown]
  - Nausea [Unknown]
  - Rash pustular [Recovered/Resolved]
